FAERS Safety Report 5304604-3 (Version None)
Quarter: 2007Q2

REPORT INFORMATION
  Report Type: 
  Country: None (occurrence: None)
  Receive Date: 20070423
  Receipt Date: 20070413
  Transmission Date: 20071010
  Serious: Yes (Disabling)
  Sender: FDA-Public Use
  Company Number: GB-GLAXOSMITHKLINE-B0462041A

PATIENT
  Age: 23 Year
  Sex: Female

DRUGS (2)
  1. SERETIDE [Suspect]
     Indication: ASTHMA
     Dosage: 1PUFF TWICE PER DAY
     Route: 055
  2. SERETIDE [Suspect]
     Dosage: 2PUFF TWICE PER DAY
     Route: 055

REACTIONS (2)
  - NEOPLASM MALIGNANT [None]
  - ORAL CANDIDIASIS [None]
